FAERS Safety Report 8077120-6 (Version None)
Quarter: 2012Q1

REPORT INFORMATION
  Report Type: 
  Country: None (occurrence: None)
  Receive Date: 20120127
  Receipt Date: 20120120
  Transmission Date: 20120608
  Serious: Yes (Disabling)
  Sender: FDA-Public Use
  Company Number: PHEH2012US001030

PATIENT
  Sex: Female

DRUGS (2)
  1. GILENYA [Suspect]
     Indication: RELAPSING-REMITTING MULTIPLE SCLEROSIS
     Dosage: 0.5 MG, QD
     Route: 048
     Dates: start: 20120106, end: 20120108
  2. EFFEXOR [Concomitant]
     Indication: AFFECT LABILITY
     Dosage: 15 MG, QD
     Route: 048

REACTIONS (6)
  - HEART RATE DECREASED [None]
  - FATIGUE [None]
  - DIARRHOEA [None]
  - BLOOD PRESSURE INCREASED [None]
  - HEADACHE [None]
  - NAUSEA [None]
